FAERS Safety Report 18675754 (Version 1)
Quarter: 2020Q4

REPORT INFORMATION
  Report Type: Spontaneous
  Country: US (occurrence: US)
  Receive Date: 20201229
  Receipt Date: 20201229
  Transmission Date: 20210114
  Serious: No
  Sender: FDA-Public Use
  Company Number: US-SA-2020SA364129

PATIENT

DRUGS (2)
  1. IBRANCE [Suspect]
     Active Substance: PALBOCICLIB
     Dosage: UNK
  2. AMBIEN [Suspect]
     Active Substance: ZOLPIDEM TARTRATE
     Indication: INSOMNIA

REACTIONS (9)
  - Diet refusal [Unknown]
  - Insomnia [Unknown]
  - Drug ineffective [Unknown]
  - Crying [Unknown]
  - Tremor [Unknown]
  - Weight decreased [Recovering/Resolving]
  - Headache [Recovered/Resolved]
  - Memory impairment [Unknown]
  - Rash [Recovered/Resolved]
